FAERS Safety Report 5615456-6 (Version None)
Quarter: 2008Q1

REPORT INFORMATION
  Report Type: 
  Country: None (occurrence: None)
  Receive Date: 20080206
  Receipt Date: 20080123
  Transmission Date: 20080703
  Serious: Yes (Other)
  Sender: FDA-Public Use
  Company Number: US-AMGEN-QUU261925

PATIENT
  Sex: Male
  Weight: 92.2 kg

DRUGS (6)
  1. NEULASTA [Suspect]
     Indication: CHEMOTHERAPY
     Route: 058
     Dates: start: 20071128, end: 20080116
  2. TAXOTERE [Concomitant]
     Dates: start: 20071127
  3. CISPLATIN [Concomitant]
     Dates: start: 20071127
  4. AMIFOSTINE [Concomitant]
     Dates: start: 20071127
  5. ALOXI [Concomitant]
     Dates: start: 20071127
  6. DECADRON [Concomitant]
     Dates: start: 20071127

REACTIONS (1)
  - DYSPNOEA [None]
